FAERS Safety Report 8905828 (Version 2)
Quarter: 2013Q1

REPORT INFORMATION
  Report Type: Report from Study
  Country: GB (occurrence: GB)
  Receive Date: 20121109
  Receipt Date: 20130128
  Transmission Date: 20140127
  Serious: Yes (Hospitalization, Other)
  Sender: FDA-Public Use
  Company Number: GB-009507513-1203USA01508

PATIENT
  Age: 29 Year
  Sex: Male

DRUGS (6)
  1. RALTEGRAVIR POTASSIUM [Suspect]
     Indication: HIV INFECTION
     Dosage: 400 MG, BID
     Route: 048
     Dates: start: 20111125
  2. CODEINE [Concomitant]
     Dosage: UNK UNK, PRN
  3. DOTHIEPIN HYDROCHLORIDE [Concomitant]
     Dosage: UNK MG, QD
  4. ACETAMINOPHEN [Concomitant]
     Dosage: UNK UNK, PRN
  5. ZOPICLONE [Suspect]
     Dosage: 180 MG, UNK
     Dates: start: 20120205, end: 20120205
  6. EMTRICITABINE (+) TENOFOVIR DISOPROXIL FUMARATE [Suspect]
     Indication: HIV INFECTION
     Dosage: UNK UNK, QD
     Route: 048
     Dates: start: 20111125

REACTIONS (3)
  - Suicide attempt [Recovered/Resolved]
  - Suicide attempt [Recovered/Resolved]
  - Pneumonia [Unknown]
